FAERS Safety Report 20776190 (Version 2)
Quarter: 2022Q2

REPORT INFORMATION
  Report Type: Spontaneous
  Country: US (occurrence: US)
  Receive Date: 20220502
  Receipt Date: 20220526
  Transmission Date: 20220721
  Serious: Yes (Other)
  Sender: FDA-Public Use
  Company Number: US-PFIZER INC-202200618827

PATIENT
  Sex: Male
  Weight: 57 kg

DRUGS (3)
  1. ROCURONIUM BROMIDE [Suspect]
     Active Substance: ROCURONIUM BROMIDE
     Indication: Endotracheal intubation
     Dosage: 50 MG
     Route: 042
  2. ROCURONIUM BROMIDE [Suspect]
     Active Substance: ROCURONIUM BROMIDE
     Indication: Anaesthesia
     Dosage: ANOTHER 20MG
  3. ROCURONIUM BROMIDE [Suspect]
     Active Substance: ROCURONIUM BROMIDE
     Dosage: ANOTHER 20MG

REACTIONS (4)
  - Drug ineffective [Unknown]
  - Muscle twitching [Unknown]
  - Dyskinesia [Unknown]
  - Off label use [Unknown]

NARRATIVE: CASE EVENT DATE: 20220413
